FAERS Safety Report 6382256-1 (Version None)
Quarter: 2009Q3

REPORT INFORMATION
  Report Type: 
  Country: None (occurrence: None)
  Receive Date: 20090930
  Receipt Date: 20090921
  Transmission Date: 20100115
  Serious: Yes (Other)
  Sender: FDA-Public Use
  Company Number: JP-BAXTER-2009BH012268

PATIENT
  Age: 16 Year
  Sex: Male

DRUGS (7)
  1. ADVATE [Suspect]
     Indication: HAEMORRHAGE PROPHYLAXIS
     Route: 042
     Dates: start: 20070101
  2. ADVATE [Suspect]
     Route: 042
     Dates: start: 20070101
  3. ADVATE [Suspect]
     Route: 042
     Dates: start: 20070101
  4. ADVATE [Suspect]
     Route: 042
     Dates: start: 20070101
  5. ADVATE [Suspect]
     Route: 042
     Dates: start: 20070101
  6. ADVATE [Suspect]
     Route: 042
     Dates: start: 20070101
  7. ADVATE [Suspect]
     Route: 042
     Dates: start: 20070101

REACTIONS (1)
  - HEPATITIS B SURFACE ANTIGEN POSITIVE [None]
